FAERS Safety Report 8268049-9 (Version None)
Quarter: 2012Q2

REPORT INFORMATION
  Report Type: 
  Country: None (occurrence: None)
  Receive Date: 20120409
  Receipt Date: 20120330
  Transmission Date: 20120825
  Serious: Yes (Death, Hospitalization)
  Sender: FDA-Public Use
  Company Number: US-VERTEX PHARMACEUTICALS INC.-AE-2012-004678

PATIENT
  Age: 60 Year
  Sex: Male

DRUGS (5)
  1. PEGINTERFERON [Concomitant]
     Indication: HEPATITIS C
     Dates: end: 20120308
  2. RIBAVIRIN [Concomitant]
     Indication: HEPATITIS C
     Dates: end: 20120308
  3. RIBAVIRIN [Concomitant]
  4. INCIVEK [Suspect]
     Indication: HEPATITIS C
     Dates: end: 20120308
  5. PEGINTERFERON [Concomitant]

REACTIONS (3)
  - POST PROCEDURAL COMPLICATION [None]
  - COLITIS [None]
  - JAUNDICE [None]
